FAERS Safety Report 5308832-2 (Version None)
Quarter: 2007Q2

REPORT INFORMATION
  Report Type: 
  Country: None (occurrence: None)
  Receive Date: 20070426
  Receipt Date: 20070423
  Transmission Date: 20071010
  Serious: Yes (Hospitalization)
  Sender: FDA-Public Use
  Company Number: GB-GENENTECH-225445

PATIENT
  Sex: Female

DRUGS (3)
  1. EFALIZUMAB [Suspect]
     Indication: PSORIASIS
     Dosage: 1 MG/KG, 1/WEEK
     Dates: start: 20060222, end: 20060503
  2. DOXAZOSIN MESYLATE [Concomitant]
     Indication: HYPERTENSION
     Dosage: 12 MG, QD
     Dates: end: 20060503
  3. DOXAZOSIN MESYLATE [Concomitant]
     Dosage: 16 MG, QD
     Dates: start: 20060503, end: 20060511

REACTIONS (6)
  - ABDOMINAL STRANGULATED HERNIA [None]
  - DUODENAL ULCER [None]
  - OVARIAN ENLARGEMENT [None]
  - SMALL INTESTINAL OBSTRUCTION [None]
  - SPINAL FUSION SURGERY [None]
  - WOUND DEHISCENCE [None]
